FAERS Safety Report 6635728-6 (Version None)
Quarter: 2010Q1

REPORT INFORMATION
  Report Type: 
  Country: None (occurrence: None)
  Receive Date: 20100315
  Receipt Date: 20100302
  Transmission Date: 20100710
  Serious: Yes (Hospitalization)
  Sender: FDA-Public Use
  Company Number: JP-AMGEN-US336949

PATIENT
  Sex: Female
  Weight: 39 kg

DRUGS (18)
  1. ENBREL [Suspect]
     Indication: RHEUMATOID ARTHRITIS
     Route: 058
     Dates: start: 20080402
  2. METHOTREXATE [Suspect]
     Indication: RHEUMATOID ARTHRITIS
     Route: 048
  3. PREDNISOLONE [Suspect]
     Indication: RHEUMATOID ARTHRITIS
     Route: 048
     Dates: start: 20020101, end: 20080523
  4. PREDNISOLONE [Suspect]
     Route: 048
     Dates: start: 20080524, end: 20090708
  5. PREDNISOLONE [Suspect]
     Dosage: UNSPECIFIED
     Route: 048
     Dates: start: 20090709, end: 20090910
  6. PREDNISOLONE [Suspect]
     Route: 048
     Dates: start: 20090911
  7. BASEN [Concomitant]
     Indication: DIABETES MELLITUS
     Route: 048
  8. ASPARTATE CALCIUM [Concomitant]
     Indication: OSTEOPOROSIS
     Route: 048
  9. GLAKAY [Concomitant]
     Indication: OSTEOPOROSIS
     Route: 048
  10. FOSAMAX [Concomitant]
     Route: 048
  11. MYSLEE [Concomitant]
     Indication: INSOMNIA
     Route: 048
  12. ALFACALCIDOL [Concomitant]
     Indication: OSTEOPOROSIS
     Route: 048
  13. MUCOSTA [Concomitant]
     Dosage: UNSPECIFIED
     Route: 048
  14. MOHRUS [Concomitant]
     Indication: RHEUMATOID ARTHRITIS
     Dosage: UNSPECIFIED; TAPE
  15. LOXONIN [Concomitant]
     Indication: RHEUMATOID ARTHRITIS
     Route: 048
     Dates: start: 20020101
  16. LOXONIN [Concomitant]
     Dosage: UNSPECIFIED
  17. LIPITOR [Concomitant]
     Indication: HYPERLIPIDAEMIA
     Route: 048
  18. FOLIAMIN [Concomitant]
     Route: 048

REACTIONS (3)
  - BACTERAEMIA [None]
  - CONDITION AGGRAVATED [None]
  - RHEUMATOID ARTHRITIS [None]
